FAERS Safety Report 13129888 (Version 1)
Quarter: 2017Q1

REPORT INFORMATION
  Report Type: Spontaneous
  Country: US (occurrence: US)
  Receive Date: 20170118
  Receipt Date: 20170118
  Transmission Date: 20170428
  Serious: No
  Sender: FDA-Public Use
  Company Number: None

PATIENT
  Age: 23 Year
  Sex: Male
  Weight: 65.25 kg

DRUGS (2)
  1. VRAYLAR [Suspect]
     Active Substance: CARIPRAZINE
     Indication: BIPOLAR DISORDER
     Dosage: ?          QUANTITY:1 TABLET(S);?
     Route: 048
     Dates: start: 20160701, end: 20160701
  2. CENTRUM MULTIVITAMIN [Concomitant]

REACTIONS (5)
  - Seizure [None]
  - Tachycardia [None]
  - Panic reaction [None]
  - Depressed mood [None]
  - Crying [None]

NARRATIVE: CASE EVENT DATE: 20160701
